FAERS Safety Report 24848425 (Version 1)
Quarter: 2025Q1

REPORT INFORMATION
  Report Type: Spontaneous
  Country: GB (occurrence: GB)
  Receive Date: 20250116
  Receipt Date: 20250116
  Transmission Date: 20250409
  Serious: Yes (Other)
  Sender: BIOGEN
  Company Number: GB-BIOGEN-2025BI01296961

PATIENT
  Sex: Female

DRUGS (1)
  1. VUMERITY [Suspect]
     Active Substance: DIROXIMEL FUMARATE
     Indication: Multiple sclerosis
     Route: 050
     Dates: end: 20241222

REACTIONS (5)
  - Type 1 diabetes mellitus [Unknown]
  - Blood glucose increased [Unknown]
  - Blood ketone body present [Unknown]
  - Feeling abnormal [Unknown]
  - Vomiting [Unknown]
